FAERS Safety Report 5410297-7 (Version None)
Quarter: 2007Q3

REPORT INFORMATION
  Report Type: 
  Country: None (occurrence: None)
  Receive Date: 20070808
  Receipt Date: 20070727
  Transmission Date: 20080115
  Serious: Yes (Hospitalization)
  Sender: FDA-Public Use
  Company Number: 2007AL003078

PATIENT
  Sex: Male

DRUGS (1)
  1. PHENYTOIN [Suspect]
     Indication: DRUG USE FOR UNKNOWN INDICATION
     Dosage: PO
     Route: 048
     Dates: start: 20050301, end: 20050401

REACTIONS (9)
  - ANXIETY [None]
  - DERMATITIS ALLERGIC [None]
  - EMOTIONAL DISTRESS [None]
  - EYE DISORDER [None]
  - FEAR [None]
  - PAIN [None]
  - SCAR [None]
  - SKIN EXFOLIATION [None]
  - STEVENS-JOHNSON SYNDROME [None]
